FAERS Safety Report 18891179 (Version 5)
Quarter: 2021Q1

REPORT INFORMATION
  Report Type: Report from Study
  Country: None (occurrence: GR)
  Receive Date: 20210215
  Receipt Date: 20210310
  Transmission Date: 20210420
  Serious: Yes (Hospitalization)
  Sender: FDA-Public Use
  Company Number: GR-ABBVIE-21K-066-3773023-00

PATIENT
  Age: 54 Year
  Sex: Female
  Weight: 65 kg

DRUGS (5)
  1. DUODOPA [Suspect]
     Active Substance: CARBIDOPA\LEVODOPA
     Indication: PARKINSON^S DISEASE
     Dosage: MD: 10.1 ML; CR: 3.2 ML/H; ED: 2.3 ML
     Route: 050
     Dates: start: 20210126
  2. STALEVO [Concomitant]
     Active Substance: CARBIDOPA\ENTACAPONE\LEVODOPA
     Indication: PARKINSON^S DISEASE
     Dosage: 1 X 2 (05:00 + 22:00)
     Route: 048
  3. DUODOPA [Suspect]
     Active Substance: CARBIDOPA\LEVODOPA
     Dosage: MD: 10.1 ML; CR: 3.2 ML/H; ED: 2.5 ML
     Route: 050
  4. SYMMETREL [Concomitant]
     Active Substance: AMANTADINE HYDROCHLORIDE
     Indication: PARKINSON^S DISEASE
     Dosage: 1 X 2 (08:00 + 14:00)
     Route: 048
  5. MIRAPEXIN [Concomitant]
     Active Substance: PRAMIPEXOLE
     Indication: PARKINSON^S DISEASE
     Dosage: 0.7MG AT 05:00; 0.35MG AT 13:00; 0.35MG AT 19:00
     Route: 048

REACTIONS (9)
  - C-reactive protein increased [Recovered/Resolved]
  - Hyperkinesia [Unknown]
  - Myalgia [Not Recovered/Not Resolved]
  - Hallucination [Recovered/Resolved]
  - Hyperkinesia [Recovered/Resolved]
  - Post procedural complication [Unknown]
  - Abdominal pain [Recovered/Resolved]
  - Flatulence [Unknown]
  - Histrionic personality disorder [Unknown]

NARRATIVE: CASE EVENT DATE: 2021
